FAERS Safety Report 8589362-1 (Version None)
Quarter: 2012Q3

REPORT INFORMATION
  Report Type: 
  Country: None (occurrence: None)
  Receive Date: 20120731
  Receipt Date: 20120720
  Transmission Date: 20120928
  Serious: Yes (Disabling)
  Sender: FDA-Public Use
  Company Number: GB-DEXPHARM-20120877

PATIENT
  Age: 47 Year
  Sex: Male

DRUGS (3)
  1. TRAMADOL HCL [Concomitant]
  2. OMEPRAZOLE [Suspect]
     Indication: DYSPEPSIA
     Dosage: 20 MG MILLIGRAM(S) SEP. DOSAGES/INTERVAL: 1 IN 1 D, ORAL
     Route: 048
     Dates: start: 20080318, end: 20080711
  3. PROCHLORPERAZINE MALEATE [Concomitant]

REACTIONS (4)
  - BURNING SENSATION [None]
  - HYPOAESTHESIA [None]
  - PARAESTHESIA [None]
  - MUSCLE SPASMS [None]
